FAERS Safety Report 5595935-0 (Version None)
Quarter: 2008Q1

REPORT INFORMATION
  Report Type: 
  Country: None (occurrence: None)
  Receive Date: 20080118
  Receipt Date: 20080114
  Transmission Date: 20080703
  Serious: Yes (Life-Threatening, Hospitalization, Disabling)
  Sender: FDA-Public Use
  Company Number: GB-SANOFI-SYNTHELABO-A01200800457

PATIENT
  Age: 35 Year
  Sex: Male

DRUGS (3)
  1. FLUOROURACIL [Concomitant]
     Route: 042
     Dates: start: 20070727, end: 20070828
  2. OXALIPLATIN [Suspect]
     Indication: COLON CANCER
     Dosage: UNK
     Route: 042
  3. CAPECITABINE [Suspect]
     Route: 048

REACTIONS (1)
  - CARDIAC ARREST [None]
